FAERS Safety Report 4970977-4 (Version None)
Quarter: 2006Q2

REPORT INFORMATION
  Report Type: 
  Country: None (occurrence: None)
  Receive Date: 20060411
  Receipt Date: 20060411
  Transmission Date: 20061013
  Serious: Yes (Hospitalization)
  Sender: FDA-Public Use
  Company Number: None

PATIENT
  Age: 14 Year
  Sex: Female
  Weight: 39.5 kg

DRUGS (1)
  1. TYLENOL (CAPLET) [Suspect]

REACTIONS (1)
  - OVERDOSE [None]
